FAERS Safety Report 13479530 (Version 1)
Quarter: 2017Q2

REPORT INFORMATION
  Report Type: Report from Study
  Country: AU (occurrence: AU)
  Receive Date: 20170425
  Receipt Date: 20170425
  Transmission Date: 20170830
  Serious: Yes (Hospitalization)
  Sender: FDA-Public Use
  Company Number: PHHY2016AU171328

PATIENT
  Age: 65 Year
  Sex: Female

DRUGS (24)
  1. COLGOUT [Concomitant]
     Active Substance: COLCHICINE
     Indication: GOUT
     Dosage: 1 DF (0.5MG), QD
     Route: 065
  2. SOMAC [Concomitant]
     Active Substance: PANTOPRAZOLE SODIUM
     Indication: REFLUX GASTRITIS
     Dosage: 1 DF (40MG), QD (MORNING)
     Route: 065
  3. EUTROXSIG [Concomitant]
     Active Substance: LEVOTHYROXINE SODIUM
     Indication: THYROID DISORDER
     Dosage: 1 DF (50UG), QD (IN THE MORNING)
     Route: 065
  4. MYFORTIC [Suspect]
     Active Substance: MYCOPHENOLATE SODIUM
     Dosage: 1080 MG, UNK
     Route: 065
     Dates: start: 20140515, end: 20141218
  5. MYFORTIC [Suspect]
     Active Substance: MYCOPHENOLATE SODIUM
     Dosage: 2 DF (360MG), QD (WITH OR IMMEDIATELY AFTER FOOD)
     Route: 065
  6. AMOXYCILLIN [Concomitant]
     Active Substance: AMOXICILLIN
     Indication: PRODUCT USED FOR UNKNOWN INDICATION
     Dosage: 1 DF (875-125MG), BID (OR IMMEDICATELY AFTER FOOD)
     Route: 065
  7. FISH OIL [Concomitant]
     Active Substance: FISH OIL
     Indication: PRODUCT USED FOR UNKNOWN INDICATION
     Dosage: 2 DF, QD (EVENING)
     Route: 065
  8. FLAXSEED [Concomitant]
     Active Substance: FLAX SEED
     Indication: PRODUCT USED FOR UNKNOWN INDICATION
     Dosage: 1 DF, BID
     Route: 065
  9. CURCUMIN [Concomitant]
     Active Substance: CURCUMIN
     Indication: PRODUCT USED FOR UNKNOWN INDICATION
     Dosage: 2 DF, QD
     Route: 065
  10. VFEND [Suspect]
     Active Substance: VORICONAZOLE
     Indication: BRONCHOPULMONARY ASPERGILLOSIS
     Dosage: 300 MG, BID
     Route: 048
     Dates: start: 20150605
  11. VFEND [Suspect]
     Active Substance: VORICONAZOLE
     Indication: ANTIFUNGAL PROPHYLAXIS
     Dosage: 1 DF (200MG), BID (60 MINUTES BEFORE FOOD)
     Route: 065
  12. MYFORTIC [Suspect]
     Active Substance: MYCOPHENOLATE SODIUM
     Indication: SYSTEMIC LUPUS ERYTHEMATOSUS
     Dosage: 1440 MG, UNK
     Route: 065
     Dates: start: 20110407, end: 20140515
  13. MYFORTIC [Suspect]
     Active Substance: MYCOPHENOLATE SODIUM
     Dosage: 1440 MG, QD
     Route: 048
     Dates: start: 20141218, end: 20160228
  14. NEORAL [Suspect]
     Active Substance: CYCLOSPORINE
     Dosage: 1 DF (25MG), BID
     Route: 065
  15. ANGININE [Concomitant]
     Indication: CHEST PAIN
     Dosage: 1 DF (6MG), PRN (DISSOLVE HALF TO 1 TABLET UNDER THE TONGUE WHEN REQUIRED)
     Route: 065
  16. PANAFCORTELONE [Suspect]
     Active Substance: PREDNISOLONE
     Indication: IMMUNOSUPPRESSANT DRUG THERAPY
     Dosage: 2 DF (5MG), QD (WITH OR IMMEDIATELY AFTER FOOD)
     Route: 065
  17. OSTELIN VITAMIN D [Concomitant]
     Active Substance: CHOLECALCIFEROL
     Indication: PRODUCT USED FOR UNKNOWN INDICATION
     Dosage: 2 DF (25 MCG), QD (MORNING)
     Route: 065
  18. AVAPRO [Concomitant]
     Active Substance: IRBESARTAN
     Indication: HYPERTENSION
     Dosage: 1 DF (300MG), QD (MORNING)
     Route: 065
  19. CALCIUM OROTATE [Concomitant]
     Active Substance: CALCIUM OROTATE
     Indication: PRODUCT USED FOR UNKNOWN INDICATION
     Dosage: 1 DF, QD (1 IN THE MORNING)
     Route: 065
  20. MYFORTIC [Suspect]
     Active Substance: MYCOPHENOLATE SODIUM
     Dosage: 1080 MG, UNK
     Route: 065
  21. NEORAL [Suspect]
     Active Substance: CYCLOSPORINE
     Indication: IMMUNOSUPPRESSANT DRUG THERAPY
     Dosage: 50 MG, UNK
     Route: 065
     Dates: start: 2015, end: 20150625
  22. VFEND [Suspect]
     Active Substance: VORICONAZOLE
     Dosage: 2 DF (50MG), BID (60 MINUTES BEFORE FOOD)
     Route: 065
  23. ALLOSIG [Concomitant]
     Indication: GOUT
     Dosage: 2 DF (100MG), QD (MORNING)
     Route: 065
  24. CRESTOR [Concomitant]
     Active Substance: ROSUVASTATIN CALCIUM
     Indication: BLOOD CHOLESTEROL INCREASED
     Dosage: 1 DF (10MG), QD (AT NIGHT)
     Route: 065

REACTIONS (12)
  - Haemoptysis [Not Recovered/Not Resolved]
  - Pleural effusion [Recovering/Resolving]
  - Haemothorax [Unknown]
  - Bronchopulmonary aspergillosis [Recovering/Resolving]
  - Empyema [Unknown]
  - Pulmonary mass [Unknown]
  - Mycobacterium avium complex infection [Not Recovered/Not Resolved]
  - Lower respiratory tract infection [Recovering/Resolving]
  - Bronchiectasis [Unknown]
  - Drug interaction [Unknown]
  - Pleuritic pain [Recovered/Resolved]
  - Hepatic cyst [Not Recovered/Not Resolved]

NARRATIVE: CASE EVENT DATE: 20141225
